FAERS Safety Report 25189926 (Version 3)
Quarter: 2025Q2

REPORT INFORMATION
  Report Type: Spontaneous
  Country: US (occurrence: US)
  Receive Date: 20250411
  Receipt Date: 20250514
  Transmission Date: 20250716
  Serious: No
  Sender: ABBVIE
  Company Number: US-ABBVIE-6214453

PATIENT
  Age: 60 Year
  Sex: Female
  Weight: 64 kg

DRUGS (1)
  1. DURYSTA [Suspect]
     Active Substance: BIMATOPROST
     Indication: Product used for unknown indication
     Route: 050

REACTIONS (5)
  - Visual impairment [Unknown]
  - Implant site irritation [Not Recovered/Not Resolved]
  - Device dislocation [Not Recovered/Not Resolved]
  - Intraocular pressure increased [Unknown]
  - Implant site pain [Not Recovered/Not Resolved]
